FAERS Safety Report 5054100-6 (Version None)
Quarter: 2006Q3

REPORT INFORMATION
  Report Type: 
  Country: None (occurrence: None)
  Receive Date: 20060713
  Receipt Date: 20060626
  Transmission Date: 20061208
  Serious: Yes (Hospitalization)
  Sender: FDA-Public Use
  Company Number: 2005EU002413

PATIENT
  Age: 56 Year
  Sex: Female

DRUGS (10)
  1. FK506(TACROLIMUS CAPSULES)(TACROLIMUS) CAPSULE [Suspect]
     Indication: LIVER TRANSPLANT
     Dosage: SEE IMAGE
     Dates: start: 20040125, end: 20040125
  2. FK506(TACROLIMUS CAPSULES)(TACROLIMUS) CAPSULE [Suspect]
     Indication: LIVER TRANSPLANT
     Dosage: SEE IMAGE
     Dates: start: 20040126, end: 20040126
  3. FK506(TACROLIMUS CAPSULES)(TACROLIMUS) CAPSULE [Suspect]
     Indication: LIVER TRANSPLANT
     Dosage: SEE IMAGE
     Dates: start: 20041229, end: 20050124
  4. MYCOPHENOLATE MOFETIL [Suspect]
     Indication: LIVER TRANSPLANT
     Dosage: SEE IMAGE
     Dates: start: 20041228, end: 20041231
  5. MYCOPHENOLATE MOFETIL [Suspect]
     Indication: LIVER TRANSPLANT
     Dosage: SEE IMAGE
     Dates: start: 20050101
  6. METHYLPREDNISOLONE [Suspect]
     Indication: LIVER TRANSPLANT
     Dosage: 250.00 MG, UID/QD,
     Dates: start: 20041229
  7. PREDNISONE TAB [Suspect]
     Indication: LIVER TRANSPLANT
     Dosage: 20.00 MG, UID/QD,
     Dates: start: 20050101, end: 20050119
  8. TAZOCILLINE (PIPERACILLIN SODIUM, TAZOBACTAM SODIUM) [Concomitant]
  9. ACETAMINOPHEN [Concomitant]
  10. INSULIN [Concomitant]

REACTIONS (5)
  - ASCITES [None]
  - DRUG TOXICITY [None]
  - HEPATORENAL SYNDROME [None]
  - HYPONATRAEMIA [None]
  - KIDNEY TRANSPLANT REJECTION [None]
